FAERS Safety Report 4482509-8 (Version None)
Quarter: 2004Q4

REPORT INFORMATION
  Report Type: 
  Country: None (occurrence: None)
  Receive Date: 20041022
  Receipt Date: 20040906
  Transmission Date: 20050328
  Serious: Yes (Death)
  Sender: FDA-Public Use
  Company Number: JP-MERCK-0409USA00587

PATIENT
  Age: 24 Week
  Sex: Female
  Weight: 1 kg

DRUGS (2)
  1. INDOCIN I.V. [Suspect]
     Indication: PATENT DUCTUS ARTERIOSUS
     Route: 042
     Dates: start: 20031020, end: 20031020
  2. INDOCIN I.V. [Suspect]
     Route: 042
     Dates: start: 20031021, end: 20031021

REACTIONS (1)
  - RENAL FAILURE ACUTE [None]
